FAERS Safety Report 15009232 (Version 1)
Quarter: 2018Q2

REPORT INFORMATION
  Report Type: Spontaneous
  Country: US (occurrence: US)
  Receive Date: 20180614
  Receipt Date: 20180614
  Transmission Date: 20180711
  Serious: No
  Sender: FDA-Public Use
  Company Number: US-LUPIN PHARMACEUTICALS INC.-2018-02083

PATIENT
  Age: 62 Year
  Sex: Male
  Weight: 111.11 kg

DRUGS (2)
  1. TEMAZEPAM CAPSULES, USP, 30 MG [Suspect]
     Active Substance: TEMAZEPAM
     Indication: INSOMNIA
     Dosage: UNK UNK, QD
     Route: 048
     Dates: start: 20171209
  2. ELIQUIS [Concomitant]
     Active Substance: APIXABAN
     Indication: THROMBOSIS
     Dosage: UNK
     Route: 065

REACTIONS (1)
  - False positive investigation result [Not Recovered/Not Resolved]

NARRATIVE: CASE EVENT DATE: 20180302
